FAERS Safety Report 5924193-X (Version None)
Quarter: 2008Q4

REPORT INFORMATION
  Report Type: 
  Country: None (occurrence: None)
  Receive Date: 20081020
  Receipt Date: 20081008
  Transmission Date: 20090506
  Serious: Yes (Hospitalization)
  Sender: FDA-Public Use
  Company Number: CA-ELI_LILLY_AND_COMPANY-CA200809006343

PATIENT
  Age: 58 Year
  Sex: Female

DRUGS (4)
  1. FORTEO [Suspect]
     Indication: OSTEOPOROSIS
     Dosage: 20 UG, DAILY (1/D)
     Route: 058
     Dates: start: 20080908, end: 20080928
  2. FORTEO [Suspect]
     Dosage: 20 UG, DAILY (1/D)
     Route: 058
     Dates: start: 20081001
  3. CALCIUM W/VITAMIN D NOS [Concomitant]
  4. CORTISONE [Concomitant]
     Dosage: UNK, WEEKLY (1/W)

REACTIONS (10)
  - ARTHRALGIA [None]
  - BACK PAIN [None]
  - DIZZINESS [None]
  - ERYTHEMA [None]
  - HYPERHIDROSIS [None]
  - LOCAL SWELLING [None]
  - NAUSEA [None]
  - PALPITATIONS [None]
  - SCIATICA [None]
  - SWELLING FACE [None]
